FAERS Safety Report 4960977-2 (Version None)
Quarter: 2006Q1

REPORT INFORMATION
  Report Type: 
  Country: None (occurrence: None)
  Receive Date: 20060328
  Receipt Date: 20060320
  Transmission Date: 20060701
  Serious: Yes (Hospitalization)
  Sender: FDA-Public Use
  Company Number: DE-2005-000560

PATIENT
  Age: 54 Year
  Sex: Female

DRUGS (2)
  1. MIRENA [Suspect]
     Indication: CONTRACEPTION
     Dosage: SEE IMAGE
     Route: 015
     Dates: start: 19980623, end: 20030501
  2. MIRENA [Suspect]
     Indication: CONTRACEPTION
     Dosage: SEE IMAGE
     Route: 015
     Dates: start: 20040523

REACTIONS (1)
  - BREAST CANCER FEMALE [None]
